FAERS Safety Report 13916606 (Version 1)
Quarter: 2017Q3

REPORT INFORMATION
  Report Type: Spontaneous
  Country: US (occurrence: US)
  Receive Date: 20170829
  Receipt Date: 20170829
  Transmission Date: 20171127
  Serious: No
  Sender: FDA-Public Use
  Company Number: US-009507513-1708USA009005

PATIENT
  Age: 34 Year
  Sex: Male

DRUGS (1)
  1. CUBICIN [Suspect]
     Active Substance: DAPTOMYCIN
     Indication: CELLULITIS STAPHYLOCOCCAL
     Dosage: 400 MG, QD
     Route: 042
     Dates: start: 20170816

REACTIONS (1)
  - Infusion site pain [Unknown]

NARRATIVE: CASE EVENT DATE: 20170816
